FAERS Safety Report 22936342 (Version 2)
Quarter: 2023Q4

REPORT INFORMATION
  Report Type: Spontaneous
  Country: NL (occurrence: NL)
  Receive Date: 20230912
  Receipt Date: 20231110
  Transmission Date: 20240110
  Serious: No
  Sender: FDA-Public Use
  Company Number: NL-Merck Healthcare KGaA-2023472687

PATIENT
  Sex: Male

DRUGS (1)
  1. TEPOTINIB [Suspect]
     Active Substance: TEPOTINIB
     Indication: Product used for unknown indication
     Route: 048
     Dates: start: 20230425

REACTIONS (1)
  - Oedema [Unknown]
